FAERS Safety Report 5431727-0 (Version None)
Quarter: 2007Q3

REPORT INFORMATION
  Report Type: 
  Country: None (occurrence: None)
  Receive Date: 20070731
  Receipt Date: 20070505
  Transmission Date: 20080115
  Serious: No
  Sender: FDA-Public Use
  Company Number: US200705001702

PATIENT
  Age: 48 Year
  Sex: Female
  Weight: 116.1 kg

DRUGS (8)
  1. BYETTA [Suspect]
     Indication: TYPE 2 DIABETES MELLITUS
     Dosage: 5 UG, 2/D, SUBCUTANEOUS; 10 UG, 2/D, SUBCUTANEOUS
     Route: 058
     Dates: start: 20050801, end: 20050901
  2. BYETTA [Suspect]
     Indication: TYPE 2 DIABETES MELLITUS
     Dosage: 5 UG, 2/D, SUBCUTANEOUS; 10 UG, 2/D, SUBCUTANEOUS
     Route: 058
     Dates: start: 20050901
  3. EXENATIDE (EXENATIDE PEN) [Concomitant]
  4. ACTOS [Concomitant]
  5. METFORMIN HCL [Concomitant]
  6. GLUCOPHAGE [Concomitant]
  7. ALTACE [Concomitant]
  8. ZOCOR [Concomitant]

REACTIONS (3)
  - NAUSEA [None]
  - WEIGHT DECREASED [None]
  - WEIGHT INCREASED [None]
